FAERS Safety Report 10402128 (Version 3)
Quarter: 2014Q4

REPORT INFORMATION
  Report Type: Spontaneous
  Country: FR (occurrence: FR)
  Receive Date: 20140822
  Receipt Date: 20141201
  Transmission Date: 20150528
  Serious: Yes (Hospitalization, Other)
  Sender: FDA-Public Use
  Company Number: FR-ELI_LILLY_AND_COMPANY-FR201408003431

PATIENT
  Age: 39 Year
  Sex: Female
  Weight: 63 kg

DRUGS (6)
  1. ZYPADHERA [Suspect]
     Active Substance: OLANZAPINE PAMOATE
     Dosage: 405 MG, MONTHLY (1/M) (EVERY 4 WEEKS)
     Route: 030
     Dates: start: 201301, end: 20140307
  2. LIORESAL [Concomitant]
     Active Substance: BACLOFEN
     Dosage: 60 MG, QD
     Route: 065
     Dates: start: 20140109
  3. CYMBALTA [Suspect]
     Active Substance: DULOXETINE HYDROCHLORIDE
     Indication: PRODUCT USED FOR UNKNOWN INDICATION
     Dosage: 120 MG, QD
     Route: 065
     Dates: start: 20131106
  4. ZYPADHERA [Suspect]
     Active Substance: OLANZAPINE PAMOATE
     Indication: PSYCHOTIC DISORDER
     Dosage: 300 MG, 2/M (EVERY 2 WEEKS)
     Route: 030
     Dates: start: 201301, end: 201303
  5. ZYPADHERA [Suspect]
     Active Substance: OLANZAPINE PAMOATE
     Dosage: 300 MG, MONTHLY (1/M)
     Dates: start: 201303, end: 20140307
  6. SERESTA [Concomitant]
     Active Substance: OXAZEPAM
     Dosage: 50 MG, BID
     Route: 065
     Dates: start: 20131106

REACTIONS (2)
  - Urinary incontinence [Recovering/Resolving]
  - Generalised tonic-clonic seizure [Recovering/Resolving]

NARRATIVE: CASE EVENT DATE: 20140724
